FAERS Safety Report 8438176-1 (Version None)
Quarter: 2012Q2

REPORT INFORMATION
  Report Type: 
  Country: None (occurrence: None)
  Receive Date: 20120614
  Receipt Date: 20120611
  Transmission Date: 20120825
  Serious: Yes (Death)
  Sender: FDA-Public Use
  Company Number: GB-ABBOTT-12P-167-0945160-00

PATIENT
  Sex: Male

DRUGS (2)
  1. HUMIRA [Suspect]
     Indication: CROHN'S DISEASE
  2. METHADONE HCL [Suspect]
     Indication: ANALGESIC THERAPY

REACTIONS (6)
  - TOXICITY TO VARIOUS AGENTS [None]
  - MALAISE [None]
  - PAIN [None]
  - DIFFUSE ALVEOLAR DAMAGE [None]
  - CROHN'S DISEASE [None]
  - ADVERSE DRUG REACTION [None]
